FAERS Safety Report 8911641 (Version 1)
Quarter: 2012Q4

REPORT INFORMATION
  Report Type: Spontaneous
  Country: US (occurrence: None)
  Receive Date: 20121114
  Receipt Date: 20121114
  Transmission Date: 20130627
  Serious: Yes (Other)
  Sender: FDA-Public Use
  Company Number: None

PATIENT
  Age: 58 Year
  Sex: Female
  Weight: 88 kg

DRUGS (12)
  1. MONTELUKAST [Suspect]
     Route: 048
     Dates: start: 20120730
  2. ALBUTEROL NEBS [Concomitant]
  3. AMITRIPTYLLINE [Concomitant]
  4. ATORVASTATIN [Concomitant]
  5. DICLOFENAC [Concomitant]
  6. GLYBURIDE [Concomitant]
  7. LISINOPRIL [Concomitant]
  8. METOCLOPRAMIDE [Concomitant]
  9. OMEPRAZOLE [Concomitant]
  10. PREDNISONE [Concomitant]
  11. SPIRIVA [Concomitant]
  12. SIMBICORT [Concomitant]

REACTIONS (2)
  - Wheezing [None]
  - Dyspnoea [None]
